FAERS Safety Report 23307545 (Version 2)
Quarter: 2023Q4

REPORT INFORMATION
  Report Type: Spontaneous
  Country: JP (occurrence: JP)
  Receive Date: 20231218
  Receipt Date: 20231227
  Transmission Date: 20240110
  Serious: Yes (Hospitalization, Other)
  Sender: FDA-Public Use
  Company Number: JP-GILEAD-2023-0654897

PATIENT
  Age: 78 Year
  Sex: Male

DRUGS (4)
  1. VEKLURY [Suspect]
     Active Substance: REMDESIVIR
     Indication: COVID-19
     Dosage: UNK
     Route: 065
  2. VEKLURY [Suspect]
     Active Substance: REMDESIVIR
     Dosage: UNK
     Route: 065
  3. VEKLURY [Suspect]
     Active Substance: REMDESIVIR
     Dosage: UNK
     Route: 065
  4. OBINUTUZUMAB [Concomitant]
     Active Substance: OBINUTUZUMAB
     Indication: Follicular lymphoma
     Dosage: UNK

REACTIONS (2)
  - Cholecystitis [Unknown]
  - Pneumonia bacterial [Unknown]
